FAERS Safety Report 13413080 (Version 2)
Quarter: 2017Q2

REPORT INFORMATION
  Report Type: Spontaneous
  Country: US (occurrence: US)
  Receive Date: 20170407
  Receipt Date: 20170412
  Transmission Date: 20170830
  Serious: Yes (Other)
  Sender: FDA-Public Use
  Company Number: US-JNJFOC-20170332997

PATIENT
  Age: 84 Year
  Sex: Female
  Weight: 71.67 kg

DRUGS (3)
  1. BABY ASPIRIN [Concomitant]
     Active Substance: ASPIRIN
     Indication: PRODUCT USED FOR UNKNOWN INDICATION
     Route: 065
     Dates: start: 2017
  2. MOTRIN [Suspect]
     Active Substance: IBUPROFEN
     Indication: INTERVERTEBRAL DISC PROTRUSION
     Dosage: SOMETIMES 200 MG INSTEAD OF 400 MG
     Route: 048
     Dates: start: 201701, end: 201703
  3. MOTRIN [Suspect]
     Active Substance: IBUPROFEN
     Indication: SCIATICA
     Dosage: SOMETIMES 200 MG INSTEAD OF 400 MG
     Route: 048
     Dates: start: 201701, end: 201703

REACTIONS (2)
  - Product use in unapproved indication [Unknown]
  - Atrial fibrillation [Unknown]

NARRATIVE: CASE EVENT DATE: 201701
